FAERS Safety Report 4680912-4 (Version None)
Quarter: 2005Q2

REPORT INFORMATION
  Report Type: 
  Country: None (occurrence: None)
  Receive Date: 20050603
  Receipt Date: 20050519
  Transmission Date: 20051028
  Serious: Yes (Other)
  Sender: FDA-Public Use
  Company Number: PHEH2005US05762

PATIENT
  Age: 66 Year
  Sex: Female

DRUGS (1)
  1. ELIDEL [Suspect]
     Indication: RASH PAPULAR
     Dosage: UNK, BID
     Route: 061
     Dates: start: 20050101, end: 20050201

REACTIONS (5)
  - APPLICATION SITE IRRITATION [None]
  - B-CELL LYMPHOMA [None]
  - CONDITION AGGRAVATED [None]
  - DRUG INEFFECTIVE [None]
  - RASH [None]
